FAERS Safety Report 6975068-9 (Version None)
Quarter: 2010Q3

REPORT INFORMATION
  Report Type: 
  Country: None (occurrence: None)
  Receive Date: 20100910
  Receipt Date: 20090128
  Transmission Date: 20110219
  Serious: No
  Sender: FDA-Public Use
  Company Number: US-WYE-H07982209

PATIENT
  Sex: Male
  Weight: 86.26 kg

DRUGS (3)
  1. PRISTIQ [Suspect]
     Indication: DEPRESSION
     Route: 048
     Dates: start: 20081001, end: 20081101
  2. PRISTIQ [Suspect]
     Route: 048
     Dates: start: 20081101
  3. TYLENOL [Concomitant]

REACTIONS (1)
  - TREMOR [None]
